FAERS Safety Report 17177815 (Version 1)
Quarter: 2019Q4

REPORT INFORMATION
  Report Type: Spontaneous
  Country: SE (occurrence: SE)
  Receive Date: 20191219
  Receipt Date: 20191219
  Transmission Date: 20200122
  Serious: Yes (Hospitalization)
  Sender: FDA-Public Use
  Company Number: SE-009507513-1912SWE007875

PATIENT
  Sex: Female

DRUGS (2)
  1. PROPAVAN [Suspect]
     Active Substance: PROPIOMAZINE
     Dosage: 40 TO 50 PIECES 25 MG
     Route: 048
     Dates: start: 20190123, end: 20190123
  2. MIRTAZAPINE. [Suspect]
     Active Substance: MIRTAZAPINE
     Dosage: 5 PIECES OF MIRTAZAPINE 30 MG
     Route: 048
     Dates: start: 20190123, end: 20190123

REACTIONS (5)
  - Intentional overdose [Unknown]
  - Intentional self-injury [Unknown]
  - Nystagmus [Unknown]
  - Hypokalaemia [Unknown]
  - Somnolence [Unknown]

NARRATIVE: CASE EVENT DATE: 20190123
